FAERS Safety Report 5849060-1 (Version None)
Quarter: 2008Q3

REPORT INFORMATION
  Report Type: 
  Country: None (occurrence: None)
  Receive Date: 20080815
  Receipt Date: 20080804
  Transmission Date: 20090109
  Serious: Yes (Life-Threatening, Hospitalization)
  Sender: FDA-Public Use
  Company Number: WAES 0808FRA00006

PATIENT
  Age: 36 Year
  Sex: Female

DRUGS (6)
  1. TAB ALDOMET (METHYLDOPA) [Suspect]
     Indication: HYPERTENSION
     Dosage: 250 MG TID PO
     Route: 048
     Dates: start: 20070220
  2. INSULIN [Concomitant]
  3. LABETALOL HCI [Concomitant]
  4. LERCANIDIPINE [Concomitant]
  5. NICARDIPINE HCI [Concomitant]
  6. ROSIGLITAZONE MALEATE [Concomitant]

REACTIONS (5)
  - CAESAREAN SECTION [None]
  - DRUG EXPOSURE DURING PREGNANCY [None]
  - FOETAL ARRHYTHMIA [None]
  - FOETAL GROWTH RETARDATION [None]
  - OLIGOHYDRAMNIOS [None]
